FAERS Safety Report 18406717 (Version 1)
Quarter: 2020Q4

REPORT INFORMATION
  Report Type: Spontaneous
  Country: US (occurrence: US)
  Receive Date: 20201020
  Receipt Date: 20201020
  Transmission Date: 20210114
  Serious: Yes (Other)
  Sender: FDA-Public Use
  Company Number: US-PFIZER INC-2020395282

PATIENT
  Age: 74 Year
  Sex: Female

DRUGS (1)
  1. EFFEXOR XR [Suspect]
     Active Substance: VENLAFAXINE HYDROCHLORIDE
     Dosage: 300 MG, DAILY (TWO CAPSULES ONCE A DAY BY MOUTH, IN THE MORNING)
     Route: 048

REACTIONS (3)
  - Overdose [Unknown]
  - Depressed mood [Unknown]
  - Suicidal ideation [Unknown]
